FAERS Safety Report 14922310 (Version 4)
Quarter: 2018Q3

REPORT INFORMATION
  Report Type: Spontaneous
  Country: US (occurrence: US)
  Receive Date: 20180522
  Receipt Date: 20180907
  Transmission Date: 20181010
  Serious: No
  Sender: FDA-Public Use
  Company Number: US-JNJFOC-20180508887

PATIENT
  Age: 45 Year
  Sex: Female
  Weight: 65.32 kg

DRUGS (6)
  1. WOMENS ROGAINE ? UNSCENTED [Suspect]
     Active Substance: MINOXIDIL
     Route: 061
  2. CALCIUM+VITAMIN D3 [Concomitant]
     Active Substance: CALCIUM\CHOLECALCIFEROL
     Indication: METABOLIC SURGERY
     Route: 065
     Dates: start: 20170501
  3. FLINTSTONES COMPLETE [Concomitant]
     Active Substance: VITAMINS
     Indication: METABOLIC SURGERY
     Route: 065
     Dates: start: 20170501
  4. WOMENS ROGAINE UNSCENTED [Suspect]
     Active Substance: MINOXIDIL
     Indication: ALOPECIA
     Dosage: DOSE: AS DIRECTED
     Route: 061
  5. WOMENS ROGAINE UNSCENTED [Suspect]
     Active Substance: MINOXIDIL
     Route: 061
  6. WOMENS ROGAINE ? UNSCENTED [Suspect]
     Active Substance: MINOXIDIL
     Indication: ALOPECIA
     Route: 061
     Dates: start: 20180409

REACTIONS (1)
  - Hair growth abnormal [Recovering/Resolving]

NARRATIVE: CASE EVENT DATE: 201805
